FAERS Safety Report 8064468-4 (Version None)
Quarter: 2012Q1

REPORT INFORMATION
  Report Type: 
  Country: None (occurrence: None)
  Receive Date: 20120123
  Receipt Date: 20120118
  Transmission Date: 20120608
  Serious: Yes (Other)
  Sender: FDA-Public Use
  Company Number: PHHY2009CA46145

PATIENT
  Sex: Female

DRUGS (12)
  1. CLONAZEPAM [Concomitant]
  2. ZOLEDRONOC ACID [Suspect]
     Indication: OSTEOPOROSIS
     Dosage: UNK UKN, UNK
     Route: 042
     Dates: start: 20091002
  3. LEVOTHYROXINE SODIUM [Concomitant]
  4. ESTRADIOL [Concomitant]
  5. ZOLEDRONOC ACID [Suspect]
     Dosage: UNK UKN, UNK
     Route: 042
     Dates: start: 20101027
  6. PROGESTERONE [Concomitant]
  7. PREDNISONE [Concomitant]
     Dosage: 2 MG, QD
  8. REMERON [Concomitant]
  9. ORENCIA [Concomitant]
     Dosage: 500 MG, UNK
     Route: 042
  10. HYDROXYCHLOROQUINE SULFATE [Concomitant]
     Dosage: 200 MG, BID
  11. ZYTRAM [Concomitant]
  12. ZOPICLONE [Concomitant]

REACTIONS (4)
  - MEAN CELL VOLUME ABNORMAL [None]
  - PLATELET COUNT INCREASED [None]
  - RED CELL DISTRIBUTION WIDTH INCREASED [None]
  - BLOOD THYROID STIMULATING HORMONE DECREASED [None]
